FAERS Safety Report 12367940 (Version 5)
Quarter: 2016Q3

REPORT INFORMATION
  Report Type: Spontaneous
  Country: GR (occurrence: GR)
  Receive Date: 20160513
  Receipt Date: 20160808
  Transmission Date: 20161109
  Serious: Yes (Other)
  Sender: FDA-Public Use
  Company Number: GR-SA-2016SA091099

PATIENT
  Age: 67 Year
  Sex: Male

DRUGS (10)
  1. ALDACTONE [Concomitant]
     Active Substance: SPIRONOLACTONE
  2. SOLOSTAR [Concomitant]
     Active Substance: DEVICE
     Indication: DIABETES MELLITUS
  3. NITRODYL [Concomitant]
  4. PANTIUM [Concomitant]
  5. LASIX [Concomitant]
     Active Substance: FUROSEMIDE
  6. LIPITOR [Concomitant]
     Active Substance: ATORVASTATIN CALCIUM
     Dates: end: 20160501
  7. LANTUS SOLOSTAR [Suspect]
     Active Substance: INSULIN GLARGINE
     Indication: DIABETES MELLITUS
     Dosage: DOSE:36 UNIT(S)
     Route: 058
     Dates: start: 2000
  8. SALOSPIR [Concomitant]
     Active Substance: ASPIRIN
  9. LOPRESSOR [Concomitant]
     Active Substance: METOPROLOL TARTRATE
  10. PLAVIX [Concomitant]
     Active Substance: CLOPIDOGREL BISULFATE

REACTIONS (8)
  - Myocardial infarction [Unknown]
  - Oedema [Unknown]
  - Oedema peripheral [Unknown]
  - Blood glucose increased [Unknown]
  - Blood glucose increased [Unknown]
  - Product use issue [Unknown]
  - Drug ineffective [Unknown]
  - Intentional product misuse [Unknown]

NARRATIVE: CASE EVENT DATE: 20151021
